FAERS Safety Report 6369274-4 (Version None)
Quarter: 2009Q3

REPORT INFORMATION
  Report Type: 
  Country: None (occurrence: None)
  Receive Date: 20090922
  Receipt Date: 20090918
  Transmission Date: 20100115
  Serious: Yes (Death)
  Sender: FDA-Public Use
  Company Number: US-GILEAD-2009-0024354

PATIENT
  Sex: Male
  Weight: 83.99 kg

DRUGS (12)
  1. LETAIRIS [Suspect]
     Indication: PULMONARY ARTERIAL HYPERTENSION
     Route: 048
     Dates: start: 20081125
  2. NASAREL SPRAY [Concomitant]
  3. PEPCID [Concomitant]
  4. XANAX [Concomitant]
  5. LASIX [Concomitant]
  6. TYLENOL W/ CODEINE [Concomitant]
  7. COUMADIN [Concomitant]
  8. REVATIO [Concomitant]
  9. WELLBUTRIN [Concomitant]
  10. POTASSIUM CHLORIDE [Concomitant]
  11. TESSALON [Concomitant]
  12. CELEXA [Concomitant]

REACTIONS (1)
  - DEATH [None]
